FAERS Safety Report 15848157 (Version 3)
Quarter: 2019Q2

REPORT INFORMATION
  Report Type: Spontaneous
  Country: US (occurrence: US)
  Receive Date: 20190121
  Receipt Date: 20190408
  Transmission Date: 20190711
  Serious: No
  Sender: FDA-Public Use
  Company Number: US-PFIZER INC-2018090045

PATIENT
  Age: 76 Year
  Sex: Male

DRUGS (2)
  1. XELJANZ [Suspect]
     Active Substance: TOFACITINIB CITRATE
     Indication: RHEUMATOID ARTHRITIS
     Dosage: 5 MG, 1X/DAY
     Route: 048
     Dates: start: 2018, end: 201902
  2. XELJANZ [Suspect]
     Active Substance: TOFACITINIB CITRATE
     Dosage: 5 MG, DAILY
     Route: 048
     Dates: start: 20190324

REACTIONS (9)
  - Fall [Unknown]
  - Musculoskeletal discomfort [Unknown]
  - Drug hypersensitivity [Unknown]
  - Rhinorrhoea [Recovering/Resolving]
  - Pain in extremity [Unknown]
  - Nasopharyngitis [Unknown]
  - Malaise [Unknown]
  - Aphonia [Unknown]
  - Oropharyngeal pain [Unknown]

NARRATIVE: CASE EVENT DATE: 2018
